FAERS Safety Report 12240185 (Version 1)
Quarter: 2016Q2

REPORT INFORMATION
  Report Type: Spontaneous
  Country: CN (occurrence: CN)
  Receive Date: 20160405
  Receipt Date: 20160405
  Transmission Date: 20160815
  Serious: Yes (Other)
  Sender: FDA-Public Use
  Company Number: CN-BAXTER-2016BAX016823

PATIENT
  Age: 18 Year
  Sex: Male
  Weight: 65 kg

DRUGS (2)
  1. 20% MANNITOL INJECTION [Suspect]
     Active Substance: MANNITOL
     Indication: OEDEMA
  2. 20% MANNITOL INJECTION [Suspect]
     Active Substance: MANNITOL
     Indication: DEHYDRATION
     Dosage: 15 ML OF 250 ML
     Route: 041
     Dates: start: 20150831, end: 20150831

REACTIONS (3)
  - Palpitations [Recovering/Resolving]
  - Nausea [Recovering/Resolving]
  - Tachypnoea [Recovering/Resolving]

NARRATIVE: CASE EVENT DATE: 20150831
